FAERS Safety Report 5131883-8 (Version None)
Quarter: 2006Q4

REPORT INFORMATION
  Report Type: 
  Country: None (occurrence: None)
  Receive Date: 20061016
  Receipt Date: 20061002
  Transmission Date: 20070319
  Serious: Yes (Other)
  Sender: FDA-Public Use
  Company Number: 2006119519

PATIENT
  Sex: Female

DRUGS (1)
  1. CHANTIX [Suspect]

REACTIONS (5)
  - BLOOD PRESSURE INCREASED [None]
  - FACIAL PALSY [None]
  - HYPOAESTHESIA [None]
  - OESOPHAGEAL DISORDER [None]
  - URINARY RETENTION [None]
